FAERS Safety Report 20735901 (Version 2)
Quarter: 2022Q2

REPORT INFORMATION
  Report Type: Other
  Country: KR (occurrence: None)
  Receive Date: 20220421
  Receipt Date: 20220426
  Transmission Date: 20220721
  Serious: Yes (Hospitalization, Other)
  Sender: FDA-Public Use
  Company Number: KR-ROCHE-3045741

PATIENT
  Age: 49 Year
  Sex: Male
  Weight: 67.6 kg

DRUGS (26)
  1. ATEZOLIZUMAB [Suspect]
     Active Substance: ATEZOLIZUMAB
     Indication: Hepatocellular carcinoma
     Route: 041
     Dates: start: 20220210
  2. ATEZOLIZUMAB [Suspect]
     Active Substance: ATEZOLIZUMAB
     Route: 042
     Dates: start: 20220303
  3. ATEZOLIZUMAB [Suspect]
     Active Substance: ATEZOLIZUMAB
     Route: 041
     Dates: start: 20220324
  4. BEVACIZUMAB [Suspect]
     Active Substance: BEVACIZUMAB
     Indication: Hepatocellular carcinoma
     Route: 042
     Dates: start: 20220210
  5. BEVACIZUMAB [Suspect]
     Active Substance: BEVACIZUMAB
     Route: 042
     Dates: start: 20220303
  6. BEVACIZUMAB [Suspect]
     Active Substance: BEVACIZUMAB
     Route: 042
     Dates: start: 20220324
  7. NITROGLYCERIN [Concomitant]
     Active Substance: NITROGLYCERIN
     Indication: Chest pain
     Dates: start: 20220217
  8. OXYCODONE HYDROCHLORIDE [Concomitant]
     Active Substance: OXYCODONE HYDROCHLORIDE
     Indication: Cancer pain
     Dates: start: 20220221
  9. ZOLPIDEM TARTRATE [Concomitant]
     Active Substance: ZOLPIDEM TARTRATE
     Indication: Insomnia
     Dates: start: 20220303
  10. NEXIUM [Concomitant]
     Active Substance: ESOMEPRAZOLE MAGNESIUM
     Indication: Prophylaxis
     Dates: start: 20220311, end: 20220325
  11. AMOXICILLIN [Concomitant]
     Active Substance: AMOXICILLIN
     Indication: Chronic gastritis
     Dates: start: 20220311, end: 20220325
  12. CLARI [Concomitant]
     Indication: Duodenal ulcer
     Dates: start: 20220311, end: 20220325
  13. LAMINA-G [Concomitant]
     Indication: Duodenal ulcer
     Dates: start: 20220311
  14. HEPA-MERZ INFUSION [Concomitant]
     Indication: Cholangitis
     Dates: start: 20220405, end: 20220406
  15. OXYCODONE HYDROCHLORIDE [Concomitant]
     Active Substance: OXYCODONE HYDROCHLORIDE
     Indication: Cholangitis
     Dates: start: 20220405, end: 20220406
  16. PIPERACILLIN SODIUM\TAZOBACTAM SODIUM [Concomitant]
     Active Substance: PIPERACILLIN SODIUM\TAZOBACTAM SODIUM
     Indication: Cholangitis
     Dates: start: 20220405, end: 20220405
  17. PROPACETAMOL HYDROCHLORIDE [Concomitant]
     Active Substance: PROPACETAMOL HYDROCHLORIDE
     Indication: Pyrexia
     Dates: start: 20220405, end: 20220411
  18. METRONIDAZOLE [Concomitant]
     Active Substance: METRONIDAZOLE
     Indication: Cholangitis
     Dates: start: 20220405, end: 20220405
  19. MEROPENEM [Concomitant]
     Active Substance: MEROPENEM
     Indication: Cholangitis
     Dates: start: 20220406, end: 20220411
  20. MACHKHAN [Concomitant]
     Indication: Hypertension
     Dates: start: 20220406, end: 20220411
  21. DULACKHAN EASY SYRUP [Concomitant]
     Indication: Constipation
     Dates: start: 20220406, end: 20220411
  22. URSODIOL [Concomitant]
     Active Substance: URSODIOL
     Dosage: 1 T
     Route: 048
     Dates: start: 20220406
  23. GODEX [ADENINE HYDROCHLORIDE;CARNITINE OROTATE;CYANOCOBALAMIN;LIVER EX [Concomitant]
     Route: 048
     Dates: start: 20220406, end: 20220410
  24. TEICONIN [Concomitant]
     Indication: Cholangitis
     Route: 042
     Dates: start: 20220407, end: 20220411
  25. TRAMADOL HYDROCHLORIDE [Concomitant]
     Active Substance: TRAMADOL HYDROCHLORIDE
     Indication: Cholangitis
     Route: 042
     Dates: start: 20220404, end: 20220411
  26. NALOXONE HYDROCHLORIDE\OXYCODONE HYDROCHLORIDE [Concomitant]
     Active Substance: NALOXONE HYDROCHLORIDE\OXYCODONE HYDROCHLORIDE
     Indication: Cancer pain
     Route: 048
     Dates: start: 20220411

REACTIONS (6)
  - Chest pain [Recovering/Resolving]
  - Insomnia [Recovering/Resolving]
  - Duodenal ulcer [Recovering/Resolving]
  - Pyrexia [Recovered/Resolved]
  - Constipation [Not Recovered/Not Resolved]
  - Cholangitis [Recovered/Resolved]

NARRATIVE: CASE EVENT DATE: 20220214
